FAERS Safety Report 23504886 (Version 1)
Quarter: 2024Q1

REPORT INFORMATION
  Report Type: Spontaneous
  Country: GB (occurrence: GB)
  Receive Date: 20240209
  Receipt Date: 20240209
  Transmission Date: 20240409
  Serious: No
  Sender: FDA-Public Use
  Company Number: None

PATIENT
  Age: 25 Year
  Sex: Female
  Weight: 85 kg

DRUGS (6)
  1. GABAPENTIN [Suspect]
     Active Substance: GABAPENTIN
     Indication: Ill-defined disorder
     Dosage: UNK
     Route: 065
     Dates: start: 20230605
  2. COCODAMOL [Concomitant]
     Active Substance: ACETAMINOPHEN\CODEINE PHOSPHATE
     Indication: Ill-defined disorder
     Dosage: UNK (1-2 UP TO FOUR TIMES A DAY WHEN REQUIRED. NOT M...)
     Route: 065
     Dates: start: 20230505, end: 20230602
  3. GABAPENTIN [Concomitant]
     Active Substance: GABAPENTIN
     Indication: Ill-defined disorder
     Dosage: 900 MILLIGRAM, QD (TAKE ONE OR TWO CAPSULES FOR REDUCING DOSE- CURRENT DAILY DOSE 900MG- REDUCE TOTA
     Route: 065
     Dates: start: 20230104
  4. KETOPROFEN [Concomitant]
     Active Substance: KETOPROFEN
     Indication: Ill-defined disorder
     Dosage: UNK (APPLY 3-4 TIMES DAILY)
     Route: 065
     Dates: start: 20230505, end: 20230602
  5. PROMETHAZINE HYDROCHLORIDE [Concomitant]
     Active Substance: PROMETHAZINE HYDROCHLORIDE
     Indication: Ill-defined disorder
     Dosage: UNK, HS TAKE ONE OR TWO AT NIGHT
     Route: 065
     Dates: start: 20230420, end: 20230428
  6. SERTRALINE [Concomitant]
     Active Substance: SERTRALINE HYDROCHLORIDE
     Indication: Ill-defined disorder
     Dosage: UNK UNK, QD (2 DAILY)
     Route: 065
     Dates: start: 20220517

REACTIONS (1)
  - Weight increased [Recovering/Resolving]

NARRATIVE: CASE EVENT DATE: 20230605
